FAERS Safety Report 6542235-8 (Version None)
Quarter: 2010Q1

REPORT INFORMATION
  Report Type: 
  Country: None (occurrence: None)
  Receive Date: 20100119
  Receipt Date: 20100107
  Transmission Date: 20100710
  Serious: Yes (Hospitalization)
  Sender: FDA-Public Use
  Company Number: B0624832A

PATIENT
  Age: 53 Year
  Sex: Female

DRUGS (3)
  1. PAROXETINE HCL [Suspect]
     Indication: DEPRESSION
  2. SELEGILINE HCL [Suspect]
  3. MOCLOBEMIDE [Suspect]

REACTIONS (17)
  - AGITATION [None]
  - ALTERED STATE OF CONSCIOUSNESS [None]
  - ATAXIA [None]
  - BLOOD PRESSURE INCREASED [None]
  - CLONUS [None]
  - CONFUSIONAL STATE [None]
  - DRUG INTERACTION [None]
  - DRUG TOXICITY [None]
  - HYPERHIDROSIS [None]
  - HYPERREFLEXIA [None]
  - MUSCLE RIGIDITY [None]
  - MUSCULOSKELETAL STIFFNESS [None]
  - MYDRIASIS [None]
  - PYREXIA [None]
  - SEROTONIN SYNDROME [None]
  - TACHYCARDIA [None]
  - TREMOR [None]
